FAERS Safety Report 9718422 (Version 1)
Quarter: 2013Q4

REPORT INFORMATION
  Report Type: Not Available
  Country: US (occurrence: US)
  Receive Date: 20131125
  Receipt Date: 20131125
  Transmission Date: 20140711
  Serious: No
  Sender: FDA-Public Use
  Company Number: US-VIVUS-2013V1000579

PATIENT
  Age: 47 Year
  Sex: Female
  Weight: 83.99 kg

DRUGS (5)
  1. QSYMIA 3.75MG/23MG [Suspect]
     Indication: WEIGHT DECREASED
     Route: 048
     Dates: start: 20130729
  2. VIIBRYD [Concomitant]
     Indication: DEPRESSION
     Dosage: STARTED 1 YEAR AGO
     Route: 048
     Dates: start: 2012
  3. ZYRTEC [Concomitant]
     Indication: SEASONAL ALLERGY
     Dosage: STARTED 5 YEARS AGO
     Route: 048
     Dates: start: 2008
  4. NASONEX [Concomitant]
     Indication: SEASONAL ALLERGY
     Dosage: STARTED 2 YEARS AGO
     Dates: start: 2011
  5. PULMOCORT [Concomitant]
     Indication: SEASONAL ALLERGY
     Dosage: STARTED 2 YEARS AGO
     Dates: start: 2011

REACTIONS (1)
  - Dysgeusia [Not Recovered/Not Resolved]
